FAERS Safety Report 5311748-9 (Version None)
Quarter: 2007Q2

REPORT INFORMATION
  Report Type: 
  Country: None (occurrence: None)
  Receive Date: 20070426
  Receipt Date: 20070426
  Transmission Date: 20071010
  Serious: Yes (Other)
  Sender: FDA-Public Use
  Company Number: None

PATIENT
  Age: 65 Year
  Sex: Male
  Weight: 73.3 kg

DRUGS (3)
  1. TRAVOPROST [Suspect]
     Indication: GLAUCOMA
     Dosage: ONE DROP OU QHS
     Dates: start: 20061103, end: 20061231
  2. OMEPRAZOLE [Concomitant]
  3. SIMVASTATIN [Concomitant]

REACTIONS (4)
  - CONJUNCTIVITIS VIRAL [None]
  - EYE ALLERGY [None]
  - EYE IRRITATION [None]
  - INTRAOCULAR PRESSURE INCREASED [None]
